FAERS Safety Report 8303612-8 (Version None)
Quarter: 2012Q2

REPORT INFORMATION
  Report Type: 
  Country: None (occurrence: None)
  Receive Date: 20120413
  Receipt Date: 20120402
  Transmission Date: 20120825
  Serious: Yes (Other)
  Sender: FDA-Public Use
  Company Number: CA-145295

PATIENT
  Age: 75 Year
  Sex: Female

DRUGS (1)
  1. WINRHO [Suspect]
     Indication: IDIOPATHIC THROMBOCYTOPENIC PURPURA
     Dosage: (4600 UG TOTAL INTRAVENOUS (NOT OTHERWISE SPECIFIED)
     Route: 042

REACTIONS (2)
  - CHILLS [None]
  - HAEMOLYTIC TRANSFUSION REACTION [None]
